FAERS Safety Report 9590272 (Version 1)
Quarter: 2013Q4

REPORT INFORMATION
  Report Type: Spontaneous
  Country: US (occurrence: US)
  Receive Date: 20131003
  Receipt Date: 20131003
  Transmission Date: 20140711
  Serious: Yes (Other)
  Sender: FDA-Public Use
  Company Number: US-MYLANLABS-2013S1021166

PATIENT
  Age: 21 Year
  Sex: Male

DRUGS (2)
  1. CITALOPRAM [Suspect]
  2. OLANZAPINE [Suspect]

REACTIONS (3)
  - Overdose [Not Recovered/Not Resolved]
  - Cardiotoxicity [Not Recovered/Not Resolved]
  - Convulsion [Not Recovered/Not Resolved]
